FAERS Safety Report 12545093 (Version 1)
Quarter: 2016Q3

REPORT INFORMATION
  Report Type: Report from Study
  Country: US (occurrence: US)
  Receive Date: 20160711
  Receipt Date: 20160711
  Transmission Date: 20161109
  Serious: Yes (Hospitalization)
  Sender: FDA-Public Use
  Company Number: US-JNJFOC-20160704710

PATIENT
  Age: 85 Year
  Sex: Female

DRUGS (1)
  1. IMBRUVICA [Suspect]
     Active Substance: IBRUTINIB
     Indication: LYMPHOMA
     Route: 048
     Dates: start: 201402

REACTIONS (4)
  - Off label use [Unknown]
  - Product use issue [Unknown]
  - Incorrect dose administered [Unknown]
  - Therapeutic procedure [Unknown]

NARRATIVE: CASE EVENT DATE: 201402
